FAERS Safety Report 12052509 (Version 1)
Quarter: 2016Q1

REPORT INFORMATION
  Report Type: Spontaneous
  Country: FR (occurrence: FR)
  Receive Date: 20160209
  Receipt Date: 20160209
  Transmission Date: 20160526
  Serious: Yes (Life-Threatening)
  Sender: FDA-Public Use
  Company Number: FR-ASTRAZENECA-2016SE11220

PATIENT
  Age: 15701 Day
  Sex: Female

DRUGS (1)
  1. ZOMIG ZMT [Suspect]
     Active Substance: ZOLMITRIPTAN
     Route: 048
     Dates: start: 20131101, end: 20150523

REACTIONS (1)
  - Ischaemic stroke [Recovering/Resolving]

NARRATIVE: CASE EVENT DATE: 20150523
